FAERS Safety Report 16797099 (Version 1)
Quarter: 2019Q3

REPORT INFORMATION
  Report Type: Spontaneous
  Country: PT (occurrence: PT)
  Receive Date: 20190911
  Receipt Date: 20190911
  Transmission Date: 20191005
  Serious: Yes (Other)
  Sender: FDA-Public Use
  Company Number: PT-AUROBINDO-AUR-APL-2019-059099

PATIENT
  Sex: Female

DRUGS (18)
  1. BRIMONIDINE [Suspect]
     Active Substance: BRIMONIDINE TARTRATE
     Indication: INTRAOCULAR PRESSURE TEST
     Dosage: 2 MILLIGRAM PER MILLILITRE
     Route: 061
  2. ADALIMUMAB [Suspect]
     Active Substance: ADALIMUMAB
     Indication: JUVENILE IDIOPATHIC ARTHRITIS
     Dosage: 24 MILLIGRAM/SQ. METER/EVERY TWO WEEKS
     Route: 058
     Dates: start: 2014
  3. DEFLAZACORT [Suspect]
     Active Substance: DEFLAZACORT
     Indication: JUVENILE IDIOPATHIC ARTHRITIS
     Dosage: 0.5 MILLIGRAM/KILOGRAM, ONCE A DAY
     Route: 048
     Dates: start: 2011
  4. DEXAMETASON [Suspect]
     Active Substance: DEXAMETHASONE
     Indication: PRODUCT USED FOR UNKNOWN INDICATION
     Dosage: TWO TIMES A DAY, EACH, IN BOTH EYES
     Route: 061
  5. LATANOPROST 50?G/ML [Suspect]
     Active Substance: LATANOPROST
     Indication: GLAUCOMA
     Dosage: 0.05 MILLIGRAM PER MILLILITRE
     Route: 061
     Dates: start: 2014
  6. BRINZOLAMIDE [Suspect]
     Active Substance: BRINZOLAMIDE
     Indication: INTRAOCULAR PRESSURE TEST
     Dosage: 10 MILLIGRAM PER MILLILITRE
     Route: 061
  7. TOCILIZUMAB. [Concomitant]
     Active Substance: TOCILIZUMAB
     Indication: PRODUCT USED FOR UNKNOWN INDICATION
     Dosage: 12 MILLIGRAM/KILOGRAM/EVERY TWO WEEKS
     Route: 042
  8. TOCILIZUMAB. [Concomitant]
     Active Substance: TOCILIZUMAB
     Dosage: UNK
  9. LATANOPROST 50?G/ML [Suspect]
     Active Substance: LATANOPROST
     Dosage: UNK
  10. ACETAZOLAMIDE. [Suspect]
     Active Substance: ACETAZOLAMIDE
     Indication: GLAUCOMA
     Dosage: 250 MILLIGRAM, ONCE A DAY
     Route: 048
     Dates: start: 2014
  11. ADALIMUMAB [Suspect]
     Active Substance: ADALIMUMAB
     Dosage: UNK
  12. BRIMONIDINE [Suspect]
     Active Substance: BRIMONIDINE TARTRATE
     Dosage: UNK
  13. IBUPROFEN. [Suspect]
     Active Substance: IBUPROFEN
     Indication: JUVENILE IDIOPATHIC ARTHRITIS
     Dosage: 30 MILLIGRAM/KILOGRAM, ONCE A DAY
     Route: 048
     Dates: start: 2010
  14. METHOTREXATE. [Suspect]
     Active Substance: METHOTREXATE
     Indication: JUVENILE IDIOPATHIC ARTHRITIS
     Dosage: 15 MILLIGRAM/SQ. METER
     Route: 048
     Dates: start: 2011
  15. METHOTREXATE. [Suspect]
     Active Substance: METHOTREXATE
     Dosage: UNK
     Route: 058
  16. DEFLAZACORT [Suspect]
     Active Substance: DEFLAZACORT
     Dosage: UNK
  17. TIMOLOL. [Suspect]
     Active Substance: TIMOLOL
     Indication: INTRAOCULAR PRESSURE INCREASED
     Dosage: 5 MILLIGRAM PER MILLILITRE
     Route: 061
  18. BRINZOLAMIDE [Suspect]
     Active Substance: BRINZOLAMIDE
     Dosage: UNK

REACTIONS (3)
  - Muscle atrophy [Unknown]
  - Body height below normal [Unknown]
  - Cushing^s syndrome [Unknown]
